FAERS Safety Report 9286134 (Version 2)
Quarter: 2013Q2

REPORT INFORMATION
  Report Type: Spontaneous
  Country: ZA (occurrence: ZA)
  Receive Date: 20130513
  Receipt Date: 20130524
  Transmission Date: 20140414
  Serious: Yes (Disabling, Other)
  Sender: FDA-Public Use
  Company Number: ZA-ASTRAZENECA-2013SE31031

PATIENT
  Age: 27914 Day
  Sex: Male
  Weight: 72 kg

DRUGS (2)
  1. CRESTOR [Suspect]
     Indication: BLOOD CHOLESTEROL INCREASED
     Route: 048
     Dates: end: 201210
  2. EZETROL [Suspect]
     Indication: BLOOD CHOLESTEROL INCREASED
     Route: 048
     Dates: start: 20130221, end: 20130321

REACTIONS (8)
  - Myoglobin blood increased [Unknown]
  - Muscle disorder [Recovered/Resolved]
  - Rhabdomyolysis [Unknown]
  - Renal impairment [Recovering/Resolving]
  - Decreased appetite [Recovering/Resolving]
  - Liver disorder [Recovering/Resolving]
  - Blood creatine phosphokinase increased [Recovered/Resolved]
  - Asthenia [Recovering/Resolving]
